FAERS Safety Report 11294918 (Version 1)
Quarter: 2015Q3

REPORT INFORMATION
  Report Type: Spontaneous
  Country: US (occurrence: None)
  Receive Date: 20150722
  Receipt Date: 20150722
  Transmission Date: 20151125
  Serious: Yes (Other)
  Sender: FDA-Public Use
  Company Number: None

PATIENT
  Age: 57 Year
  Sex: Male
  Weight: 72.58 kg

DRUGS (11)
  1. LEVEMIR [Suspect]
     Active Substance: INSULIN DETEMIR
  2. NOVOLOG [Concomitant]
     Active Substance: INSULIN ASPART
  3. MULTIVITAMIN [Concomitant]
     Active Substance: VITAMINS
  4. CREON [Concomitant]
     Active Substance: PANCRELIPASE AMYLASE\PANCRELIPASE LIPASE\PANCRELIPASE PROTEASE
  5. CARAFATE [Concomitant]
     Active Substance: SUCRALFATE
  6. MAGNESIUM OXIDE. [Concomitant]
     Active Substance: MAGNESIUM OXIDE
  7. VITAMIN C [Concomitant]
     Active Substance: ASCORBIC ACID
  8. FERROUS SULFATE [Concomitant]
     Active Substance: FERROUS SULFATE\FERROUS SULFATE, DRIED
  9. LASIX [Concomitant]
     Active Substance: FUROSEMIDE
  10. PRILOSEC [Concomitant]
     Active Substance: OMEPRAZOLE MAGNESIUM
  11. KLOR-CON [Concomitant]
     Active Substance: POTASSIUM CHLORIDE

REACTIONS (3)
  - Device malfunction [None]
  - Blood glucose increased [None]
  - Drug dose omission [None]

NARRATIVE: CASE EVENT DATE: 20150619
